FAERS Safety Report 6820272-3 (Version None)
Quarter: 2010Q3

REPORT INFORMATION
  Report Type: 
  Country: None (occurrence: None)
  Receive Date: 20100707
  Receipt Date: 20100617
  Transmission Date: 20110219
  Serious: No
  Sender: FDA-Public Use
  Company Number: US-BAYER-201026535NA

PATIENT
  Age: 56 Year
  Sex: Male

DRUGS (1)
  1. MAGNEVIST [Suspect]
     Indication: ARTERIOGRAM CAROTID
     Dosage: AS USED: 30 ML
     Dates: start: 20100617, end: 20100617

REACTIONS (1)
  - RASH ERYTHEMATOUS [None]
